FAERS Safety Report 25238907 (Version 1)
Quarter: 2025Q2

REPORT INFORMATION
  Report Type: Spontaneous
  Country: FR (occurrence: FR)
  Receive Date: 20250425
  Receipt Date: 20250425
  Transmission Date: 20250717
  Serious: Yes (Other)
  Sender: AUROBINDO
  Company Number: FR-JNJFOC-20250403143

PATIENT
  Age: 63 Year
  Sex: Male

DRUGS (2)
  1. CARBOPLATIN [Suspect]
     Active Substance: CARBOPLATIN
     Indication: Urethral cancer metastatic
     Route: 065
  2. BALVERSA [Suspect]
     Active Substance: ERDAFITINIB
     Indication: Urethral cancer metastatic
     Route: 048
     Dates: start: 2024

REACTIONS (3)
  - Renal impairment [Unknown]
  - Urethral cancer metastatic [Unknown]
  - Intentional product use issue [Unknown]
